FAERS Safety Report 24435258 (Version 1)
Quarter: 2024Q4

REPORT INFORMATION
  Report Type: Spontaneous
  Country: US (occurrence: US)
  Receive Date: 20241015
  Receipt Date: 20241015
  Transmission Date: 20250114
  Serious: No
  Sender: AMGEN
  Company Number: US-AMGEN-USASP2024201800

PATIENT
  Age: 73 Year
  Sex: Female

DRUGS (7)
  1. PREDNISONE [Suspect]
     Active Substance: PREDNISONE
     Indication: Lichen planopilaris
     Dosage: 40 MILLIGRAM (FOR 3 DAYS)
     Route: 048
  2. PREDNISONE [Suspect]
     Active Substance: PREDNISONE
     Dosage: 20 MILLIGRAM (FOR SEVEN DAYS) (TAPER)
     Route: 048
  3. CLOBETASOL [Concomitant]
     Active Substance: CLOBETASOL
     Indication: Lichen planopilaris
     Dosage: UNK (0.05%)
     Route: 061
  4. FINASTERIDE [Concomitant]
     Active Substance: FINASTERIDE
     Indication: Lichen planopilaris
     Dosage: UNK
     Route: 048
  5. KENALOG [Concomitant]
     Active Substance: TRIAMCINOLONE ACETONIDE
     Indication: Lichen planopilaris
     Dosage: UNK, INTRALESIONAL INJECTIONS
  6. HYDROXYCHLOROQUINE [Concomitant]
     Active Substance: HYDROXYCHLOROQUINE
     Indication: Lichen planopilaris
     Dosage: 200 MILLIGRAM, QD
     Route: 048
  7. TACROLIMUS [Concomitant]
     Active Substance: TACROLIMUS
     Indication: Lichen planopilaris
     Dosage: UNK UNK, BID (0.1%)
     Route: 061

REACTIONS (2)
  - Purpura senile [Recovered/Resolved]
  - Off label use [Unknown]
